FAERS Safety Report 19322873 (Version 1)
Quarter: 2021Q2

REPORT INFORMATION
  Report Type: Spontaneous
  Country: BE (occurrence: BE)
  Receive Date: 20210528
  Receipt Date: 20210528
  Transmission Date: 20210717
  Serious: Yes (Hospitalization, Other)
  Sender: FDA-Public Use
  Company Number: BE-ACCORD-226457

PATIENT
  Age: 35 Year
  Sex: Female
  Weight: 60 kg

DRUGS (1)
  1. HYDROXYCHLOROQUINE [Suspect]
     Active Substance: HYDROXYCHLOROQUINE
     Dosage: INTENTIONALLY INGESTED 100 TABLETS OF 200MG ABOUT 12 HOURS EARLIER, EQUALING 20 G.

REACTIONS (12)
  - Intentional overdose [Unknown]
  - Electrocardiogram QRS complex prolonged [Recovered/Resolved]
  - Electrocardiogram QT prolonged [Recovered/Resolved]
  - Liver function test abnormal [Recovered/Resolved]
  - Renal impairment [Recovered/Resolved]
  - Poisoning [Unknown]
  - Blood lactic acid increased [Recovered/Resolved]
  - Vomiting [Recovered/Resolved]
  - Toxicity to various agents [Unknown]
  - Arrhythmia [Recovered/Resolved]
  - Malaise [Recovered/Resolved]
  - Hypokalaemia [Recovered/Resolved]
